FAERS Safety Report 4910710-5 (Version None)
Quarter: 2006Q1

REPORT INFORMATION
  Report Type: 
  Country: None (occurrence: None)
  Receive Date: 20060210
  Receipt Date: 20060210
  Transmission Date: 20060701
  Serious: Yes (Life-Threatening, Hospitalization)
  Sender: FDA-Public Use
  Company Number: None

PATIENT
  Age: 36 Year
  Sex: Female
  Weight: 72 kg

DRUGS (5)
  1. AZATHIOPRINE [Suspect]
     Indication: POLYMYOSITIS
     Dosage: 50 MG TID PO
     Route: 048
     Dates: start: 20051101, end: 20060106
  2. PREDNISONE [Concomitant]
  3. WELLBUTRIN [Concomitant]
  4. LEXAPRO [Concomitant]
  5. M.V.I. [Concomitant]

REACTIONS (5)
  - APLASTIC ANAEMIA [None]
  - DIZZINESS [None]
  - FATIGUE [None]
  - INFECTION [None]
  - PANCYTOPENIA [None]
